FAERS Safety Report 4504143-3 (Version None)
Quarter: 2004Q4

REPORT INFORMATION
  Report Type: 
  Country: None (occurrence: None)
  Receive Date: 20041118
  Receipt Date: 20041109
  Transmission Date: 20050328
  Serious: Yes (Hospitalization)
  Sender: FDA-Public Use
  Company Number: 200421354GDDC

PATIENT
  Age: 70 Year
  Sex: Male

DRUGS (1)
  1. ARAVA [Suspect]
     Indication: RHEUMATOID ARTHRITIS
     Dosage: DOSE: UNK
     Route: 048

REACTIONS (3)
  - EOSINOPHIL COUNT ABNORMAL [None]
  - MUSCULAR WEAKNESS [None]
  - WEIGHT DECREASED [None]
